FAERS Safety Report 12706943 (Version 1)
Quarter: 2016Q3

REPORT INFORMATION
  Report Type: Report from Study
  Country: US (occurrence: US)
  Receive Date: 20160901
  Receipt Date: 20160901
  Transmission Date: 20161109
  Serious: Yes (Hospitalization)
  Sender: FDA-Public Use
  Company Number: US-PFIZER INC-2012002597

PATIENT
  Age: 63 Year
  Sex: Female
  Weight: 106.8 kg

DRUGS (7)
  1. NEXIUM [Concomitant]
     Active Substance: ESOMEPRAZOLE MAGNESIUM
     Indication: PROPHYLAXIS
     Dosage: 20 MG, 1X/DAY
     Route: 048
     Dates: start: 20110209, end: 20111223
  2. IBUPROFEN. [Suspect]
     Active Substance: IBUPROFEN
     Indication: OSTEOARTHRITIS
     Dosage: UNK
     Route: 048
     Dates: start: 20110209, end: 20111223
  3. IBUPROFEN. [Suspect]
     Active Substance: IBUPROFEN
     Indication: RHEUMATOID ARTHRITIS
  4. PANTOPRAZOLE [Concomitant]
     Active Substance: PANTOPRAZOLE SODIUM
     Indication: HYPOXIA
     Dosage: 40 MG, 1X/DAY
     Route: 048
     Dates: start: 20111118, end: 20111213
  5. CALCIUM CARBONATE/COLECALCIFEROL [Concomitant]
     Indication: PROPHYLAXIS
     Dosage: 250 MG, 2X/DAY
     Route: 048
     Dates: start: 20111118
  6. VALSARTAN. [Concomitant]
     Active Substance: VALSARTAN
     Indication: HYPERTENSION
     Dosage: 160 MG, 1X/DAY
     Route: 048
     Dates: start: 20111112
  7. PREDNISONE. [Concomitant]
     Active Substance: PREDNISONE
     Indication: HYPOXIA
     Dosage: 30 MG, 2X/DAY
     Route: 048
     Dates: start: 20111118, end: 20111212

REACTIONS (1)
  - Deep vein thrombosis [Recovered/Resolved]

NARRATIVE: CASE EVENT DATE: 20111223
